FAERS Safety Report 6380667-1 (Version None)
Quarter: 2009Q3

REPORT INFORMATION
  Report Type: 
  Country: None (occurrence: None)
  Receive Date: 20090923
  Receipt Date: 20090910
  Transmission Date: 20100115
  Serious: Yes (Death)
  Sender: FDA-Public Use
  Company Number: ADR26092009

PATIENT
  Age: 63 Year
  Sex: Female

DRUGS (4)
  1. TOPIRAMATE [Suspect]
     Indication: EPILEPSY
     Dosage: 200 MG ORAL
     Route: 048
  2. CARBAMAZEPINE [Concomitant]
  3. KEPPRA [Concomitant]
  4. VIMPAT [Concomitant]

REACTIONS (2)
  - CHRONIC OBSTRUCTIVE PULMONARY DISEASE [None]
  - HYPONATRAEMIA [None]
